FAERS Safety Report 14497313 (Version 2)
Quarter: 2019Q2

REPORT INFORMATION
  Report Type: Spontaneous
  Country: US (occurrence: US)
  Receive Date: 20180207
  Receipt Date: 20190509
  Transmission Date: 20190711
  Serious: Yes (Hospitalization, Other)
  Sender: FDA-Public Use
  Company Number: US-PFIZER INC-2018047032

PATIENT
  Age: 6 Year
  Sex: Female
  Weight: 26 kg

DRUGS (3)
  1. CHILDRENS ROBITUSSIN COUGH AND COLD CF [Suspect]
     Active Substance: DEXTROMETHORPHAN HYDROBROMIDE\GUAIFENESIN\PHENYLEPHRINE HYDROCHLORIDE
     Indication: NASAL CONGESTION
     Dosage: 10 ML, SINGLE
     Dates: start: 201801
  2. CHILDRENS ROBITUSSIN COUGH AND COLD CF [Suspect]
     Active Substance: DEXTROMETHORPHAN HYDROBROMIDE\GUAIFENESIN\PHENYLEPHRINE HYDROCHLORIDE
     Indication: COUGH
     Dosage: 10 ML, 2X/DAY
     Route: 048
     Dates: start: 20180129, end: 20180130
  3. CHILDRENS MOTRIN [Concomitant]
     Active Substance: IBUPROFEN
     Indication: PAIN
     Dosage: 10ML EVERY 8 HOURS AS NEEDED
     Dates: start: 201801

REACTIONS (6)
  - Vision blurred [Recovered/Resolved]
  - Expired product administered [Recovered/Resolved]
  - Loss of consciousness [Recovered/Resolved]
  - Restless legs syndrome [Recovered/Resolved]
  - Seizure [Recovered/Resolved]
  - Incoherent [Recovered/Resolved]

NARRATIVE: CASE EVENT DATE: 20180129
